FAERS Safety Report 25794672 (Version 2)
Quarter: 2025Q3

REPORT INFORMATION
  Report Type: Report from Study
  Country: CA (occurrence: CA)
  Receive Date: 20250912
  Receipt Date: 20250919
  Transmission Date: 20251020
  Serious: No
  Sender: TAKEDA
  Company Number: CA-TAKEDA-2025TUS072716

PATIENT
  Sex: Male

DRUGS (1)
  1. VEDOLIZUMAB [Suspect]
     Active Substance: VEDOLIZUMAB
     Indication: Crohn^s disease

REACTIONS (2)
  - Defaecation urgency [Unknown]
  - Diarrhoea [Unknown]
